FAERS Safety Report 16716992 (Version 1)
Quarter: 2019Q3

REPORT INFORMATION
  Report Type: Spontaneous
  Country: US (occurrence: US)
  Receive Date: 20190819
  Receipt Date: 20190819
  Transmission Date: 20191005
  Serious: No
  Sender: FDA-Public Use
  Company Number: US-SHIONOGI, INC-2019000706

PATIENT
  Age: 53 Year
  Sex: Female
  Weight: 109.2 kg

DRUGS (1)
  1. MULPLETA [Suspect]
     Active Substance: LUSUTROMBOPAG
     Indication: THROMBOCYTOPENIA
     Dosage: 3 MG, 1 PER 1 DAY
     Route: 048
     Dates: start: 20190713, end: 20190719

REACTIONS (4)
  - Blood glucose increased [Unknown]
  - Haemostasis [Unknown]
  - Oedema [Unknown]
  - Discharge [Unknown]

NARRATIVE: CASE EVENT DATE: 20190715
